FAERS Safety Report 6556949-7 (Version None)
Quarter: 2010Q1

REPORT INFORMATION
  Report Type: 
  Country: None (occurrence: None)
  Receive Date: 20100128
  Receipt Date: 20100121
  Transmission Date: 20100710
  Serious: Yes (Other)
  Sender: FDA-Public Use
  Company Number: US-AMGEN-US379927

PATIENT
  Sex: Male
  Weight: 91.6 kg

DRUGS (4)
  1. NPLATE [Suspect]
     Indication: IDIOPATHIC THROMBOCYTOPENIC PURPURA
     Route: 058
     Dates: start: 20091120
  2. HUMAN RED BLOOD CELLS [Concomitant]
  3. IMMU-G [Concomitant]
     Dates: start: 20090819, end: 20091214
  4. CORTICOSTEROID NOS [Concomitant]
     Dates: start: 20090721

REACTIONS (3)
  - MUSCULOSKELETAL PAIN [None]
  - PLATELET COUNT DECREASED [None]
  - TENDERNESS [None]
